FAERS Safety Report 6491167-2 (Version None)
Quarter: 2009Q4

REPORT INFORMATION
  Report Type: 
  Country: None (occurrence: None)
  Receive Date: 20091208
  Receipt Date: 20091125
  Transmission Date: 20100525
  Serious: Yes (Hospitalization)
  Sender: FDA-Public Use
  Company Number: UTC-000730

PATIENT
  Age: 59 Year
  Sex: Male
  Weight: 134.7 kg

DRUGS (5)
  1. TYVASO  (TREPROSTINIL SODIUM) [Suspect]
     Indication: PULMONARY HYPERTENSION
     Dosage: 72 MCG (18 MCG, 4 IN 1 D), INHALATION
     Route: 055
     Dates: start: 20091117, end: 20091123
  2. ADCIRCA  (TADALAFIL) [Concomitant]
  3. ADVAIR DISKUS 100/50 [Concomitant]
  4. BUMEX   (BEMETANIDE) [Concomitant]
  5. COUMADIN [Concomitant]

REACTIONS (6)
  - CHEST DISCOMFORT [None]
  - CHEST PAIN [None]
  - CONDITION AGGRAVATED [None]
  - DYSPNOEA [None]
  - HEADACHE [None]
  - NAUSEA [None]
